FAERS Safety Report 10384092 (Version 1)
Quarter: 2014Q3

REPORT INFORMATION
  Report Type: Other
  Country: US (occurrence: US)
  Receive Date: 20140814
  Receipt Date: 20140814
  Transmission Date: 20150326
  Serious: No
  Sender: FDA-Public Use
  Company Number: US-MYLAN-2014S1015860

PATIENT
  Sex: Female

DRUGS (1)
  1. MODAFINIL (TABLETS) [Suspect]
     Active Substance: MODAFINIL
     Dosage: UNK
     Dates: start: 201406, end: 201406

REACTIONS (1)
  - Skin odour abnormal [Not Recovered/Not Resolved]

NARRATIVE: CASE EVENT DATE: 201406
